FAERS Safety Report 4560034-3 (Version None)
Quarter: 2005Q1

REPORT INFORMATION
  Report Type: 
  Country: None (occurrence: None)
  Receive Date: 20050125
  Receipt Date: 20050113
  Transmission Date: 20050727
  Serious: Yes (Hospitalization)
  Sender: FDA-Public Use
  Company Number: US-JNJFOC-20050103527

PATIENT
  Sex: Female
  Weight: 63.5 kg

DRUGS (14)
  1. INFLIXIMAB [Suspect]
     Route: 042
  2. INFLIXIMAB [Suspect]
     Indication: RHEUMATOID ARTHRITIS
     Route: 042
  3. ATENOLOL [Concomitant]
  4. TEGRETOL [Concomitant]
  5. ZYRTEC [Concomitant]
  6. CELEXA [Concomitant]
  7. NEXIUM [Concomitant]
  8. SYNTHROID [Concomitant]
  9. FOSAMAX [Concomitant]
  10. PREDNISONE [Concomitant]
  11. IRON [Concomitant]
  12. ADVAIR DISKUS 100/50 [Concomitant]
  13. ADVAIR DISKUS 100/50 [Concomitant]
  14. NEBULIZER [Concomitant]

REACTIONS (4)
  - DIASTOLIC DYSFUNCTION [None]
  - INTERNATIONAL NORMALISED RATIO DECREASED [None]
  - TRANSIENT ISCHAEMIC ATTACK [None]
  - VENTRICULAR DYSFUNCTION [None]
